FAERS Safety Report 25324693 (Version 2)
Quarter: 2025Q3

REPORT INFORMATION
  Report Type: Report from Study
  Country: US (occurrence: US)
  Receive Date: 20250516
  Receipt Date: 20250728
  Transmission Date: 20251021
  Serious: Yes (Hospitalization)
  Sender: TAIHO ONCOLOGY INC
  Company Number: US-TAIHOP-2025-005144

PATIENT
  Age: 52 Year
  Sex: Male

DRUGS (1)
  1. LONSURF [Suspect]
     Active Substance: TIPIRACIL HYDROCHLORIDE\TRIFLURIDINE
     Indication: Rectal cancer
     Dosage: CYCLE UNKNOWN
     Route: 048
     Dates: start: 20250324

REACTIONS (12)
  - Urinary tract stoma complication [Unknown]
  - Urostomy complication [Unknown]
  - Diarrhoea [Unknown]
  - Fatigue [Unknown]
  - Selective eating disorder [Unknown]
  - Early satiety [Unknown]
  - Angina pectoris [Unknown]
  - Asthenia [Unknown]
  - Insomnia [Unknown]
  - Pain [Unknown]
  - Dyspnoea exertional [Unknown]
  - Inappropriate schedule of product administration [Unknown]

NARRATIVE: CASE EVENT DATE: 20250425
